FAERS Safety Report 8986052 (Version 1)
Quarter: 2012Q4

REPORT INFORMATION
  Report Type: Spontaneous
  Country: US (occurrence: None)
  Receive Date: 20121218
  Receipt Date: 20121218
  Transmission Date: 20130627
  Serious: Yes (Other)
  Sender: FDA-Public Use
  Company Number: 20120748

PATIENT
  Age: 80 Year
  Sex: Male

DRUGS (1)
  1. MULTITRACE [Suspect]
     Indication: DRUG USE FOR UNKNOWN INDICATION
     Route: 042
     Dates: start: 20120806, end: 20120807

REACTIONS (6)
  - Medication error [None]
  - Documented hypersensitivity to administered drug [None]
  - Urine chromium increased [None]
  - Blood chromium increased [None]
  - Pneumonia [None]
  - Acute respiratory distress syndrome [None]
